FAERS Safety Report 6201939-7 (Version None)
Quarter: 2009Q2

REPORT INFORMATION
  Report Type: 
  Country: None (occurrence: None)
  Receive Date: 20090526
  Receipt Date: 20090511
  Transmission Date: 20091009
  Serious: Yes (Other)
  Sender: FDA-Public Use
  Company Number: GR-GENENTECH-283321

PATIENT
  Age: 67 Year
  Sex: Female

DRUGS (1)
  1. MABTHERA [Suspect]
     Indication: RHEUMATOID ARTHRITIS
     Dosage: 1000 MG, Q15D
     Route: 042
     Dates: start: 20090401

REACTIONS (1)
  - APHTHOUS STOMATITIS [None]
